FAERS Safety Report 9648870 (Version 1)
Quarter: 2013Q4

REPORT INFORMATION
  Report Type: Spontaneous
  Country: US (occurrence: None)
  Receive Date: 20131018
  Receipt Date: 20131018
  Transmission Date: 20140711
  Serious: Yes (Other)
  Sender: FDA-Public Use
  Company Number: AEGR000149

PATIENT
  Sex: Female

DRUGS (1)
  1. JUXTAPID [Suspect]
     Indication: TYPE IIA HYPERLIPIDAEMIA
     Dosage: UNK, ORAL
     Route: 048
     Dates: start: 2013

REACTIONS (1)
  - Drug effect decreased [None]
